FAERS Safety Report 19569476 (Version 1)
Quarter: 2021Q3

REPORT INFORMATION
  Report Type: Spontaneous
  Country: NL (occurrence: NL)
  Receive Date: 20210716
  Receipt Date: 20210716
  Transmission Date: 20211014
  Serious: Yes (Hospitalization)
  Sender: FDA-Public Use
  Company Number: NL-PFIZER INC-2021824076

PATIENT
  Age: 67 Year
  Sex: Male
  Weight: 84 kg

DRUGS (11)
  1. CLINDAMYCIN HCL [Suspect]
     Active Substance: CLINDAMYCIN HYDROCHLORIDE
     Indication: ERYSIPELAS
     Dosage: 600 MG, 3X/DAY
     Dates: start: 20210614, end: 20210624
  2. CICLOPIROX. [Concomitant]
     Active Substance: CICLOPIROX
     Dosage: UNK
  3. TOPICORTE [Concomitant]
     Active Substance: DESOXIMETASONE
     Dosage: UNK
  4. SIMVASTATINE [Concomitant]
     Active Substance: SIMVASTATIN
     Dosage: UNK
  5. ZINKOXIDEMULSION LAW [Concomitant]
     Dosage: UNK
  6. OMEPRAZOL [Concomitant]
     Active Substance: OMEPRAZOLE
     Dosage: UNK
  7. CLOBETASOL [Concomitant]
     Active Substance: CLOBETASOL
     Dosage: UNK
  8. ESOMEPRAZOLE. [Concomitant]
     Active Substance: ESOMEPRAZOLE MAGNESIUM
     Dosage: UNK
  9. ACETYLSALICYLZUUR [Concomitant]
     Active Substance: ASPIRIN
     Dosage: UNK
  10. VASELINE [PARAFFIN] [Concomitant]
     Active Substance: PARAFFIN
     Dosage: UNK
  11. CETIRIZINE [Concomitant]
     Active Substance: CETIRIZINE HYDROCHLORIDE
     Dosage: UNK

REACTIONS (6)
  - Pruritus [Recovering/Resolving]
  - Chest discomfort [Recovering/Resolving]
  - Dysphagia [Recovering/Resolving]
  - Oesophagitis [Recovering/Resolving]
  - Dyspnoea [Recovering/Resolving]
  - Vomiting [Recovering/Resolving]

NARRATIVE: CASE EVENT DATE: 20210621
